FAERS Safety Report 16582825 (Version 1)
Quarter: 2019Q3

REPORT INFORMATION
  Report Type: Spontaneous
  Country: US (occurrence: US)
  Receive Date: 20190603
  Receipt Date: 20190603
  Transmission Date: 20191004
  Serious: No
  Sender: FDA-Public Use
  Company Number: None

PATIENT

DRUGS (2)
  1. TRAZODONE HYDROCHLORIDE. [Suspect]
     Active Substance: TRAZODONE HYDROCHLORIDE
  2. TOPAMAX [Suspect]
     Active Substance: TOPIRAMATE

REACTIONS (9)
  - Agitation [None]
  - Condition aggravated [None]
  - Insomnia [None]
  - Chills [None]
  - Vision blurred [None]
  - Depression [None]
  - Emotional distress [None]
  - Product dispensing error [None]
  - Hyperhidrosis [None]
